FAERS Safety Report 8900776 (Version 1)
Quarter: 2012Q4

REPORT INFORMATION
  Report Type: 
  Country: US (occurrence: US)
  Receive Date: 20121109
  Receipt Date: 20121109
  Transmission Date: 20130627
  Serious: Yes (Death, Other)
  Sender: FDA-Public Use
  Company Number: US-SANOFI-AVENTIS-2012SA082099

PATIENT
  Sex: Female

DRUGS (2)
  1. PLAVIX [Suspect]
     Route: 048
     Dates: start: 200909
  2. ASPIRIN [Suspect]
     Route: 065
     Dates: start: 200909

REACTIONS (4)
  - Shock haemorrhagic [Fatal]
  - Neck pain [Unknown]
  - Musculoskeletal pain [Unknown]
  - Haemorrhage [Unknown]
